FAERS Safety Report 25189023 (Version 1)
Quarter: 2025Q2

REPORT INFORMATION
  Report Type: Spontaneous
  Country: US (occurrence: None)
  Receive Date: 20250410
  Receipt Date: 20250410
  Transmission Date: 20250716
  Serious: Yes (Other)
  Sender: FDA-CTU
  Company Number: None

PATIENT
  Sex: Female

DRUGS (8)
  1. PROLIA [Suspect]
     Active Substance: DENOSUMAB
     Indication: Senile osteoporosis
     Dosage: FREQUENCY : DAILY;?
     Route: 058
     Dates: start: 20240327
  2. BIOTIN TAB 10MG [Concomitant]
  3. CALCIUM 600 TAB +D [Concomitant]
  4. CENTRUM TAB SILVER [Concomitant]
  5. FISH OIL CAP 1000MG [Concomitant]
  6. KP VITAMIN D [Concomitant]
  7. PAXIL TAB 40MG [Concomitant]
  8. VITAMIN C TAB 500MG [Concomitant]

REACTIONS (2)
  - Wrist fracture [None]
  - Breast cancer [None]
